FAERS Safety Report 4647317-3 (Version None)
Quarter: 2005Q2

REPORT INFORMATION
  Report Type: 
  Country: None (occurrence: None)
  Receive Date: 20050426
  Receipt Date: 20050418
  Transmission Date: 20051028
  Serious: Yes (Hospitalization)
  Sender: FDA-Public Use
  Company Number: EM2005-0123

PATIENT
  Age: 61 Year
  Sex: Female

DRUGS (1)
  1. PROLEUKIN [Suspect]
     Indication: RENAL CELL CARCINOMA STAGE UNSPECIFIED
     Dosage: SUBCUTANEOUS
     Route: 058
     Dates: start: 20040901, end: 20041001

REACTIONS (3)
  - BLOOD BRAIN BARRIER DEFECT [None]
  - CEREBRAL ISCHAEMIA [None]
  - LEUKOENCEPHALOPATHY [None]
